FAERS Safety Report 12566821 (Version 1)
Quarter: 2016Q3

REPORT INFORMATION
  Report Type: Spontaneous
  Country: US (occurrence: US)
  Receive Date: 20160718
  Receipt Date: 20160718
  Transmission Date: 20161109
  Serious: Yes (Hospitalization)
  Sender: FDA-Public Use
  Company Number: US-TEVA-677225USA

PATIENT
  Sex: Female

DRUGS (3)
  1. ELIQUIS [Suspect]
     Active Substance: APIXABAN
     Dosage: 10 MILLIGRAM DAILY;
     Dates: start: 20150223
  2. CARVEDILOL. [Suspect]
     Active Substance: CARVEDILOL
     Dosage: UNKNOWN FORM STRENGTH
  3. PRAVASTATIN. [Suspect]
     Active Substance: PRAVASTATIN
     Dosage: UNKNOWN FORM STRENGTH

REACTIONS (2)
  - Bronchitis [Recovered/Resolved]
  - Heart rate increased [Recovered/Resolved]
